FAERS Safety Report 11606194 (Version 2)
Quarter: 2015Q4

REPORT INFORMATION
  Report Type: Spontaneous
  Country: US (occurrence: None)
  Receive Date: 20151007
  Receipt Date: 20151201
  Transmission Date: 20160304
  Serious: Yes (Other)
  Sender: FDA-Public Use
  Company Number: US-MDT-ADR-2015-01911

PATIENT
  Age: 31 Year
  Sex: Female
  Weight: 38 kg

DRUGS (1)
  1. LIORESAL [Suspect]
     Active Substance: BACLOFEN
     Indication: MUSCLE SPASTICITY
     Dosage: 600 MCG/DAY

REACTIONS (7)
  - Vomiting [None]
  - Hyperhidrosis [None]
  - Muscle spasms [None]
  - Medical device complication [None]
  - Feeding disorder [None]
  - Hypertonia [None]
  - Drug withdrawal syndrome [None]
